FAERS Safety Report 13503195 (Version 1)
Quarter: 2017Q2

REPORT INFORMATION
  Report Type: Spontaneous
  Country: US (occurrence: US)
  Receive Date: 20170502
  Receipt Date: 20170502
  Transmission Date: 20170830
  Serious: No
  Sender: FDA-Public Use
  Company Number: US-PFIZER INC-2017187227

PATIENT
  Age: 32 Year
  Sex: Female
  Weight: 52 kg

DRUGS (1)
  1. EUCRISA [Suspect]
     Active Substance: CRISABOROLE
     Indication: ECZEMA
     Dosage: 2X/DAY; WASH SITE AND APPLY LAYER IN MORNING AND EVENING

REACTIONS (2)
  - Application site pain [Recovering/Resolving]
  - Condition aggravated [Not Recovered/Not Resolved]
